FAERS Safety Report 16079661 (Version 2)
Quarter: 2019Q1

REPORT INFORMATION
  Report Type: Spontaneous
  Country: LV (occurrence: LV)
  Receive Date: 20190315
  Receipt Date: 20190320
  Transmission Date: 20190418
  Serious: Yes (Death, Hospitalization, Other)
  Sender: FDA-Public Use
  Company Number: LV-GILEAD-2019-0396720

PATIENT
  Age: 29 Year
  Sex: Male

DRUGS (1)
  1. EPCLUSA [Suspect]
     Active Substance: SOFOSBUVIR\VELPATASVIR
     Indication: PRODUCT USED FOR UNKNOWN INDICATION
     Dosage: UNK
     Route: 065
     Dates: start: 201901

REACTIONS (5)
  - Hepatitis alcoholic [Fatal]
  - Alcohol abuse [Unknown]
  - Hepatic cirrhosis [Unknown]
  - Hepatitis toxic [Fatal]
  - Coma hepatic [Fatal]
